FAERS Safety Report 11232097 (Version 1)
Quarter: 2015Q2

REPORT INFORMATION
  Report Type: Spontaneous
  Country: US (occurrence: None)
  Receive Date: 20150630
  Receipt Date: 20150630
  Transmission Date: 20150821
  Serious: No
  Sender: FDA-Public Use
  Company Number: None

PATIENT

DRUGS (1)
  1. KPO4 [Suspect]
     Active Substance: POTASSIUM PHOSPHATE

REACTIONS (2)
  - Cardiac arrest [None]
  - Drug administration error [None]
